FAERS Safety Report 5596613-4 (Version None)
Quarter: 2008Q1

REPORT INFORMATION
  Report Type: 
  Country: None (occurrence: None)
  Receive Date: 20080118
  Receipt Date: 20080109
  Transmission Date: 20080703
  Serious: Yes (Death)
  Sender: FDA-Public Use
  Company Number: US-PFIZER INC-2008002875

PATIENT
  Age: 49 Year
  Sex: Female

DRUGS (8)
  1. GABAPENTIN [Suspect]
  2. PROPOXYPHENE HCL AND ACETAMINOPHEN [Suspect]
  3. DIAZEPAM [Suspect]
  4. ZYPREXA [Suspect]
  5. VENLAFAXINE HCL [Suspect]
  6. MIRTAZAPINE [Suspect]
  7. CODEINE [Suspect]
  8. METOPROLOL TARTRATE [Suspect]

REACTIONS (3)
  - CARDIAC ARREST [None]
  - DRUG ABUSE [None]
  - RESPIRATORY ARREST [None]
